FAERS Safety Report 8465343-3 (Version None)
Quarter: 2012Q2

REPORT INFORMATION
  Report Type: 
  Country: None (occurrence: None)
  Receive Date: 20120626
  Receipt Date: 20120622
  Transmission Date: 20120825
  Serious: Yes (Other)
  Sender: FDA-Public Use
  Company Number: PHHY2012NL054086

PATIENT
  Sex: Female

DRUGS (3)
  1. ZOMETA [Suspect]
     Dosage: 4 MG/100 ML, ONCE EVERY 28 DAYS
     Dates: start: 20120622
  2. ZOMETA [Suspect]
     Indication: BREAST CANCER METASTATIC
     Dosage: 4 MG/100 ML, ONCE EVERY 28 DAYS
     Dates: start: 20081202
  3. ZOMETA [Suspect]
     Dosage: 4 MG/100 ML, ONCE EVERY 28 DAYS
     Dates: start: 20120525

REACTIONS (2)
  - THROMBOSIS [None]
  - OEDEMA PERIPHERAL [None]
